FAERS Safety Report 24148543 (Version 1)
Quarter: 2024Q3

REPORT INFORMATION
  Report Type: Spontaneous
  Country: US (occurrence: None)
  Receive Date: 20240726
  Receipt Date: 20240726
  Transmission Date: 20241017
  Serious: No
  Sender: Public
  Company Number: None

PATIENT
  Age: 56 Year
  Sex: Female

DRUGS (1)
  1. RINVOQ [Suspect]
     Active Substance: UPADACITINIB

REACTIONS (6)
  - Tinnitus [None]
  - Eye pain [None]
  - Scratch [None]
  - Blister [None]
  - Herpes zoster [None]
  - Inflammation [None]

NARRATIVE: CASE EVENT DATE: 20240726
